FAERS Safety Report 9509637 (Version 2)
Quarter: 2013Q3

REPORT INFORMATION
  Report Type: Spontaneous
  Country: US (occurrence: US)
  Receive Date: 20130909
  Receipt Date: 20130909
  Transmission Date: 20140515
  Serious: No
  Sender: FDA-Public Use
  Company Number: US-BRISTOL-MYERS SQUIBB COMPANY-18906180

PATIENT
  Age: 24 Year
  Sex: Male
  Weight: 63.94 kg

DRUGS (2)
  1. ABILIFY TABS 10 MG [Suspect]
     Indication: BIPOLAR DISORDER
     Route: 048
     Dates: start: 20130429
  2. CELEXA [Concomitant]

REACTIONS (3)
  - Lethargy [Unknown]
  - Bone pain [Unknown]
  - Muscle tightness [Unknown]
